FAERS Safety Report 21036830 (Version 1)
Quarter: 2022Q3

REPORT INFORMATION
  Report Type: Spontaneous
  Country: US (occurrence: US)
  Receive Date: 20220702
  Receipt Date: 20220702
  Transmission Date: 20221027
  Serious: Yes (Other)
  Sender: FDA-Public Use
  Company Number: US-NOVARTISPH-NVSC2022US150715

PATIENT

DRUGS (1)
  1. KYMRIAH [Suspect]
     Active Substance: TISAGENLECLEUCEL
     Indication: Non-Hodgkin^s lymphoma
     Dosage: UNK, ONCE/SINGLE
     Route: 042

REACTIONS (3)
  - Lung neoplasm malignant [Unknown]
  - Second primary malignancy [Unknown]
  - Product use in unapproved indication [Unknown]
